FAERS Safety Report 11668035 (Version 3)
Quarter: 2015Q4

REPORT INFORMATION
  Report Type: Spontaneous
  Country: US (occurrence: US)
  Receive Date: 20151027
  Receipt Date: 20151117
  Transmission Date: 20160304
  Serious: Yes (Death)
  Sender: FDA-Public Use
  Company Number: CHPA2015US012461

PATIENT
  Age: 83 Year
  Sex: Male

DRUGS (1)
  1. MINERAL ICE PAIN RELIEVING [Suspect]
     Active Substance: MENTHOL
     Indication: ARTHRALGIA
     Dosage: UNK, BID
     Route: 061

REACTIONS (1)
  - Death [Fatal]

NARRATIVE: CASE EVENT DATE: 200710
